FAERS Safety Report 6071634-6 (Version None)
Quarter: 2009Q1

REPORT INFORMATION
  Report Type: 
  Country: None (occurrence: None)
  Receive Date: 20090210
  Receipt Date: 20090130
  Transmission Date: 20090719
  Serious: No
  Sender: FDA-Public Use
  Company Number: US-JNJFOC-20090104837

PATIENT
  Sex: Male
  Weight: 117.94 kg

DRUGS (9)
  1. DURAGESIC-100 [Suspect]
     Route: 062
  2. DURAGESIC-100 [Suspect]
     Route: 062
  3. DURAGESIC-100 [Suspect]
     Route: 062
  4. DURAGESIC-100 [Suspect]
     Indication: PAIN
     Route: 062
  5. METFORMIN HCL [Concomitant]
     Indication: DIABETES MELLITUS
     Route: 048
  6. SYMLIN [Concomitant]
     Indication: DIABETES MELLITUS
     Route: 058
  7. LISINOPRIL [Concomitant]
     Route: 048
  8. LEVOTHROID [Concomitant]
     Indication: HYPOTHYROIDISM
     Route: 048
  9. UNSPECIFIED PAIN MEDICATIONS [Concomitant]
     Route: 048

REACTIONS (4)
  - DRUG PRESCRIBING ERROR [None]
  - INADEQUATE ANALGESIA [None]
  - INAPPROPRIATE SCHEDULE OF DRUG ADMINISTRATION [None]
  - WRONG TECHNIQUE IN DRUG USAGE PROCESS [None]
